FAERS Safety Report 7316175-0 (Version None)
Quarter: 2011Q1

REPORT INFORMATION
  Report Type: 
  Country: None (occurrence: None)
  Receive Date: 20110225
  Receipt Date: 20101220
  Transmission Date: 20110831
  Serious: Yes (Hospitalization)
  Sender: FDA-Public Use
  Company Number: PHHY2010DE88676

PATIENT
  Age: 50 Year
  Sex: Female

DRUGS (9)
  1. VOLTAREN [Suspect]
     Dosage: UNK
     Route: 048
     Dates: start: 20101219, end: 20101219
  2. IBUPROFEN [Suspect]
     Dosage: UNK
     Dates: start: 20101219, end: 20101219
  3. PARACETAMOL [Suspect]
     Dosage: UNK
     Dates: start: 20101219, end: 20101219
  4. DICLOFENAC [Suspect]
     Dosage: UNK
     Dates: start: 20101219, end: 20101219
  5. CHLORALDURAT [Suspect]
     Dosage: UNK
     Route: 048
     Dates: start: 20101219, end: 20101219
  6. DOLOMO T [Suspect]
     Dosage: UNK
     Route: 048
     Dates: start: 20101219, end: 20101219
  7. VALDOXAN [Suspect]
     Dosage: 700 MG, SINGLE
     Route: 048
     Dates: start: 20101219, end: 20101219
  8. RANITIDIN ^ALIUD PHARMA^ [Suspect]
     Dosage: UNK
     Route: 048
     Dates: start: 20101219, end: 20101219
  9. DOLORMIN GS MIT NAPROXEN [Suspect]
     Dosage: UNK
     Dates: start: 20101219, end: 20101219

REACTIONS (4)
  - ALCOHOL POISONING [None]
  - MULTIPLE DRUG OVERDOSE INTENTIONAL [None]
  - SUICIDAL IDEATION [None]
  - SOMNOLENCE [None]
